FAERS Safety Report 9407841 (Version 1)
Quarter: 2013Q2

REPORT INFORMATION
  Report Type: Spontaneous
  Country: US (occurrence: None)
  Receive Date: 20130423
  Receipt Date: 20130423
  Transmission Date: 20140414
  Serious: Yes (Other)
  Sender: FDA-Public Use
  Company Number: 2009SA005399

PATIENT
  Sex: Male

DRUGS (9)
  1. MULTAQ [Suspect]
     Indication: ATRIAL FIBRILLATION
     Route: 048
     Dates: start: 20091102
  2. CARDIZEM [Suspect]
  3. ATENOLOL [Suspect]
  4. MAGNESIUM OXIDE [Suspect]
  5. RAMIPRIL [Suspect]
  6. WARFARIN [Suspect]
  7. XANAX [Suspect]
  8. TENORMIN [Suspect]
  9. HYDROCHLOROTHIAZIDE [Suspect]

REACTIONS (5)
  - Abdominal distension [None]
  - Atrial fibrillation [None]
  - Musculoskeletal chest pain [None]
  - Dyspnoea [None]
  - Eructation [None]
